FAERS Safety Report 6420472-0 (Version None)
Quarter: 2009Q4

REPORT INFORMATION
  Report Type: 
  Country: None (occurrence: None)
  Receive Date: 20091021
  Receipt Date: 20090604
  Transmission Date: 20100525
  Serious: No
  Sender: FDA-Public Use
  Company Number: SPV1-2009-01167

PATIENT
  Age: 39 Year
  Sex: Female

DRUGS (1)
  1. VYVANSE [Suspect]

REACTIONS (2)
  - DRUG DIVERSION [None]
  - THEFT [None]
